FAERS Safety Report 11516341 (Version 1)
Quarter: 2015Q3

REPORT INFORMATION
  Report Type: Spontaneous
  Country: US (occurrence: US)
  Receive Date: 20150917
  Receipt Date: 20150917
  Transmission Date: 20151125
  Serious: Yes (Hospitalization)
  Sender: FDA-Public Use
  Company Number: US-PFIZER INC-2015298304

PATIENT
  Age: 82 Year
  Sex: Male

DRUGS (1)
  1. SUTENT [Suspect]
     Active Substance: SUNITINIB MALATE
     Dosage: 37.5 MG, CYCLIC (28 DAYS THEN 14 DAYS OFF)
     Dates: start: 20150811, end: 20150825

REACTIONS (5)
  - Fatigue [Unknown]
  - Asthenia [Unknown]
  - Pneumonia [Unknown]
  - Renal impairment [Unknown]
  - Dehydration [Unknown]
